FAERS Safety Report 14344045 (Version 2)
Quarter: 2018Q2

REPORT INFORMATION
  Report Type: Spontaneous
  Country: GR (occurrence: GR)
  Receive Date: 20180102
  Receipt Date: 20180404
  Transmission Date: 20180711
  Serious: Yes (Other)
  Sender: FDA-Public Use
  Company Number: GR-SHIRE-GR201735212

PATIENT

DRUGS (4)
  1. PENTASA [Suspect]
     Active Substance: MESALAMINE
     Indication: DIVERTICULITIS
     Dosage: 2 DF, DAILY
     Route: 048
  2. PENTASA [Suspect]
     Active Substance: MESALAMINE
     Dosage: 1 DF, DAILY
     Route: 048
  3. RIFACOL [Concomitant]
     Active Substance: RIFAXIMIN
     Indication: DIVERTICULITIS
     Dosage: 2 DF, 1 TIME DAILY
     Route: 065
  4. PENTASA [Suspect]
     Active Substance: MESALAMINE
     Dosage: 2 DF, DAILY
     Route: 048
     Dates: end: 201711

REACTIONS (2)
  - Renal pain [Not Recovered/Not Resolved]
  - Product use in unapproved indication [Recovered/Resolved]

NARRATIVE: CASE EVENT DATE: 201711
